FAERS Safety Report 23197972 (Version 1)
Quarter: 2023Q4

REPORT INFORMATION
  Report Type: Spontaneous
  Country: US (occurrence: None)
  Receive Date: 20231117
  Receipt Date: 20231117
  Transmission Date: 20240109
  Serious: Yes (unspecified)
  Sender: FDA-Public Use
  Company Number: None

PATIENT
  Age: 39 Year
  Sex: Female
  Weight: 145 kg

DRUGS (4)
  1. OMALIZUMAB [Suspect]
     Active Substance: OMALIZUMAB
     Indication: Urticaria chronic
     Dosage: FREQUENCY : MONTHLY;?
     Route: 058
     Dates: start: 20230825, end: 20231009
  2. CETIRIZINE [Concomitant]
  3. PEPCID [Concomitant]
  4. DOXEPIN [Concomitant]

REACTIONS (3)
  - Arthralgia [None]
  - Therapy cessation [None]
  - Periarthritis [None]

NARRATIVE: CASE EVENT DATE: 20231108
